FAERS Safety Report 23165532 (Version 1)
Quarter: 2023Q4

REPORT INFORMATION
  Report Type: Spontaneous
  Country: CN (occurrence: CN)
  Receive Date: 20231109
  Receipt Date: 20231109
  Transmission Date: 20240110
  Serious: Yes (Other)
  Sender: FDA-Public Use
  Company Number: CN-PFIZER INC-PV202300180584

PATIENT
  Age: 14 Year
  Sex: Female
  Weight: 35 kg

DRUGS (3)
  1. SOLU-MEDROL [Suspect]
     Active Substance: METHYLPREDNISOLONE SODIUM SUCCINATE
     Indication: Pneumonia
     Dosage: 20 MG, 1X/DAY
     Route: 041
     Dates: start: 20230906, end: 20230907
  2. SOLU-MEDROL [Suspect]
     Active Substance: METHYLPREDNISOLONE SODIUM SUCCINATE
     Indication: Respiratory failure
  3. SOLU-MEDROL [Suspect]
     Active Substance: METHYLPREDNISOLONE SODIUM SUCCINATE
     Indication: COVID-19

REACTIONS (2)
  - Upper gastrointestinal haemorrhage [Recovering/Resolving]
  - Off label use [Unknown]

NARRATIVE: CASE EVENT DATE: 20230906
